FAERS Safety Report 14678204 (Version 3)
Quarter: 2018Q2

REPORT INFORMATION
  Report Type: Spontaneous
  Country: US (occurrence: US)
  Receive Date: 20180326
  Receipt Date: 20180608
  Transmission Date: 20180711
  Serious: No
  Sender: FDA-Public Use
  Company Number: US-ASTRAZENECA-2018SE34678

PATIENT
  Sex: Male
  Weight: 99.8 kg

DRUGS (3)
  1. BYDUREON BCISE [Suspect]
     Active Substance: EXENATIDE
     Route: 065
  2. WARFARIN [Concomitant]
     Active Substance: WARFARIN
     Indication: AORTIC VALVE DISEASE
     Route: 048
     Dates: start: 1992
  3. BYDUREON [Suspect]
     Active Substance: EXENATIDE
     Indication: GLYCOSYLATED HAEMOGLOBIN
     Route: 058
     Dates: start: 2017

REACTIONS (6)
  - Product use in unapproved indication [Unknown]
  - Injection site haemorrhage [Unknown]
  - Muscle tightness [Unknown]
  - Off label use [Unknown]
  - Device malfunction [Unknown]
  - Underdose [Unknown]
